FAERS Safety Report 8972502 (Version 1)
Quarter: 2012Q4

REPORT INFORMATION
  Report Type: Report from Study
  Country: FR (occurrence: FR)
  Receive Date: 20121218
  Receipt Date: 20121218
  Transmission Date: 20130627
  Serious: Yes (Hospitalization)
  Sender: FDA-Public Use
  Company Number: FR-ROCHE-1170927

PATIENT
  Age: 80 Year
  Sex: Male

DRUGS (5)
  1. RITUXIMAB [Suspect]
     Indication: CHRONIC LYMPHOCYTIC LEUKAEMIA
     Dosage: Induction therapy as per protocol.
     Route: 041
     Dates: start: 20110111
  2. RITUXIMAB [Suspect]
     Dosage: Start date estimated as per protocol. Induction therapy as per protocol: 500 mg/m2 on day 14, cycle
     Route: 041
     Dates: start: 20110124
  3. RITUXIMAB [Suspect]
     Dosage: Maintenance arm. Frequency as per protocol. Last dose received prior to the event was on 18/Nov/2011
     Route: 041
     Dates: start: 20111118, end: 20111118
  4. CYCLOPHOSPHAMIDE [Suspect]
     Indication: CHRONIC LYMPHOCYTIC LEUKAEMIA
     Dosage: Route, dose and frequency as per protocol.
     Route: 048
     Dates: start: 20110112
  5. FLUDARABINE [Suspect]
     Indication: CHRONIC LYMPHOCYTIC LEUKAEMIA
     Dosage: Route, dose and frequency as per protocol.
     Route: 048
     Dates: start: 20110112

REACTIONS (2)
  - Clostridium difficile infection [Not Recovered/Not Resolved]
  - Hypogammaglobulinaemia [Not Recovered/Not Resolved]
